FAERS Safety Report 8993061 (Version 4)
Quarter: 2013Q3

REPORT INFORMATION
  Report Type: Spontaneous
  Country: JP (occurrence: JP)
  Receive Date: 20130102
  Receipt Date: 20130807
  Transmission Date: 20140515
  Serious: Yes (Hospitalization, Other)
  Sender: FDA-Public Use
  Company Number: JP-009507513-1212JPN004820

PATIENT
  Age: 4 Day
  Sex: Male
  Weight: 2 kg

DRUGS (3)
  1. DIAZOXIDE CAPSULES 25 MG?MSD? [Suspect]
     Indication: HYPOGLYCAEMIA
     Dosage: 6 MG/KG, TID
     Route: 048
     Dates: start: 20121203, end: 20121205
  2. INSULIN [Concomitant]
     Indication: HYPOGLYCAEMIA
     Dosage: 11.1 UG/DL
     Dates: start: 20121203
  3. KAYTWO [Concomitant]
     Route: 048

REACTIONS (1)
  - Shock [Recovered/Resolved]
